FAERS Safety Report 8498856-9 (Version None)
Quarter: 2012Q3

REPORT INFORMATION
  Report Type: 
  Country: None (occurrence: None)
  Receive Date: 20120710
  Receipt Date: 20120628
  Transmission Date: 20120928
  Serious: No
  Sender: FDA-Public Use
  Company Number: US-BIOGENIDEC-2011BI000961

PATIENT
  Sex: Male

DRUGS (1)
  1. TYSABRI [Suspect]
     Indication: MULTIPLE SCLEROSIS
     Route: 042
     Dates: start: 20100913, end: 20101108

REACTIONS (5)
  - NAUSEA [None]
  - HEADACHE [None]
  - VISION BLURRED [None]
  - DRUG INTOLERANCE [None]
  - DIZZINESS [None]
